FAERS Safety Report 16777615 (Version 1)
Quarter: 2019Q3

REPORT INFORMATION
  Report Type: Report from Study
  Country: None (occurrence: US)
  Receive Date: 20190905
  Receipt Date: 20190905
  Transmission Date: 20191005
  Serious: Yes (Life-Threatening, Hospitalization)
  Sender: FDA-Public Use
  Company Number: US-ABBVIE-19P-163-2837048-00

PATIENT
  Age: 25 Year
  Sex: Female

DRUGS (4)
  1. ESTRADIOL/NORETHINDRONE ACETATE [Suspect]
     Active Substance: ESTRADIOL\NORETHINDRONE ACETATE
     Indication: ENDOMETRIOSIS
     Dosage: 1.0/0.5MG DAILY
     Route: 048
     Dates: start: 20180920, end: 20190527
  2. ELAGOLIX [Suspect]
     Active Substance: ELAGOLIX
     Indication: ENDOMETRIOSIS
     Route: 048
     Dates: start: 20180920, end: 20190527
  3. NAPROXEN. [Concomitant]
     Active Substance: NAPROXEN
     Indication: ENDOMETRIOSIS
     Route: 048
     Dates: start: 20180710
  4. CODEINE PHOSPHATE + ACETAMINOPHEN [Concomitant]
     Indication: ENDOMETRIOSIS
     Dosage: DOSE: 30/300 MG
     Route: 048
     Dates: start: 20180710

REACTIONS (1)
  - Suicide attempt [Not Recovered/Not Resolved]

NARRATIVE: CASE EVENT DATE: 20190527
